FAERS Safety Report 10253132 (Version 2)
Quarter: 2015Q2

REPORT INFORMATION
  Report Type: Spontaneous
  Country: US (occurrence: US)
  Receive Date: 20140623
  Receipt Date: 20150622
  Transmission Date: 20150821
  Serious: Yes (Hospitalization, Other)
  Sender: FDA-Public Use
  Company Number: US-GLAXOSMITHKLINE-A1077949A

PATIENT
  Sex: Male

DRUGS (3)
  1. KLONOPIN [Concomitant]
     Active Substance: CLONAZEPAM
  2. TYLENOL [Suspect]
     Active Substance: ACETAMINOPHEN
     Indication: SLEEP DISORDER
     Dosage: 1000 MG, PRN
     Route: 048
     Dates: start: 200408
  3. LAMICTAL [Suspect]
     Active Substance: LAMOTRIGINE
     Indication: TEMPORAL LOBE EPILEPSY
     Dosage: 500 MG, BID
     Route: 048
     Dates: start: 199604

REACTIONS (8)
  - Drug interaction [Recovered/Resolved]
  - Insomnia [Recovered/Resolved]
  - Upper limb fracture [Recovered/Resolved]
  - Divorced [Unknown]
  - Fall [Recovered/Resolved]
  - Seizure [Recovered/Resolved]
  - Cerebral lobotomy [Recovered/Resolved]
  - Drug ineffective [Recovered/Resolved]

NARRATIVE: CASE EVENT DATE: 1996
